FAERS Safety Report 8896666 (Version 1)
Quarter: 2012Q4

REPORT INFORMATION
  Report Type: Spontaneous
  Country: US (occurrence: None)
  Receive Date: 20121107
  Receipt Date: 20121107
  Transmission Date: 20130627
  Serious: Yes (Other)
  Sender: FDA-Public Use
  Company Number: None

PATIENT
  Age: 71 Year
  Sex: Female
  Weight: 85.73 kg

DRUGS (1)
  1. AVAPRO [Suspect]
     Indication: BLOOD PRESSURE

REACTIONS (5)
  - Cardiac flutter [None]
  - Product substitution issue [None]
  - Fatigue [None]
  - Feeling abnormal [None]
  - Reaction to drug excipients [None]
